FAERS Safety Report 25565698 (Version 1)
Quarter: 2025Q3

REPORT INFORMATION
  Report Type: Spontaneous
  Country: US (occurrence: US)
  Receive Date: 20250716
  Receipt Date: 20250716
  Transmission Date: 20251020
  Serious: No
  Sender: NOVO NORDISK
  Company Number: US-NOVOPROD-1298925

PATIENT
  Sex: Female

DRUGS (1)
  1. OZEMPIC [Suspect]
     Active Substance: SEMAGLUTIDE
     Indication: Product used for unknown indication
     Route: 058

REACTIONS (6)
  - Alopecia [Unknown]
  - Rosacea [Unknown]
  - Weight decreased [Unknown]
  - Constipation [Unknown]
  - Abdominal pain lower [Unknown]
  - Blood glucose increased [Unknown]
